FAERS Safety Report 12736393 (Version 3)
Quarter: 2017Q1

REPORT INFORMATION
  Report Type: Spontaneous
  Country: US (occurrence: US)
  Receive Date: 20160912
  Receipt Date: 20170206
  Transmission Date: 20170428
  Serious: Yes (Hospitalization)
  Sender: FDA-Public Use
  Company Number: US-JNJFOC-20160906914

PATIENT
  Age: 74 Year
  Sex: Male

DRUGS (8)
  1. COMPAZINE [Concomitant]
     Active Substance: PROCHLORPERAZINE MALEATE
     Indication: VOMITING
     Dosage: 10 MG PRN(EVERY SIX HOURS)
     Route: 048
     Dates: start: 20160621
  2. IMBRUVICA [Suspect]
     Active Substance: IBRUTINIB
     Indication: PRODUCT USED FOR UNKNOWN INDICATION
     Route: 048
     Dates: start: 20160623
  3. PREDNISONE. [Concomitant]
     Active Substance: PREDNISONE
     Indication: THROMBOCYTOPENIA
     Route: 048
     Dates: start: 20160712
  4. PRILOSEC [Concomitant]
     Active Substance: OMEPRAZOLE MAGNESIUM
     Indication: ABDOMINAL DISCOMFORT
     Route: 048
     Dates: start: 20160614
  5. COMPAZINE [Concomitant]
     Active Substance: PROCHLORPERAZINE MALEATE
     Indication: NAUSEA
     Dosage: 10 MG PRN(EVERY SIX HOURS)
     Route: 048
     Dates: start: 20160621
  6. AMARYL [Concomitant]
     Active Substance: GLIMEPIRIDE
     Indication: DIABETES MELLITUS
     Route: 048
     Dates: start: 20160209
  7. GLUCOPHAGE [Concomitant]
     Active Substance: METFORMIN HYDROCHLORIDE
     Indication: DIABETES MELLITUS
     Route: 048
     Dates: start: 20160209
  8. PRAVACHOL [Concomitant]
     Active Substance: PRAVASTATIN SODIUM
     Indication: BLOOD CHOLESTEROL
     Route: 048
     Dates: start: 20160209

REACTIONS (9)
  - Acute respiratory distress syndrome [Recovered/Resolved]
  - Thrombocytopenia [Recovered/Resolved with Sequelae]
  - Hypokalaemia [Recovered/Resolved]
  - Clostridium difficile colitis [Recovering/Resolving]
  - Clostridial sepsis [Recovered/Resolved]
  - Decreased appetite [Recovered/Resolved]
  - Asthenia [Unknown]
  - Diarrhoea [Recovered/Resolved]
  - Metabolic encephalopathy [Recovering/Resolving]

NARRATIVE: CASE EVENT DATE: 20160714
